FAERS Safety Report 8476077-3 (Version None)
Quarter: 2012Q2

REPORT INFORMATION
  Report Type: 
  Country: None (occurrence: None)
  Receive Date: 20120628
  Receipt Date: 20120615
  Transmission Date: 20120825
  Serious: Yes (Life-Threatening, Hospitalization, Other)
  Sender: FDA-Public Use
  Company Number: JP-ELI_LILLY_AND_COMPANY-JP201205009355

PATIENT
  Age: 34 Year
  Sex: Male

DRUGS (1)
  1. ZYPREXA [Suspect]
     Indication: SCHIZOPHRENIA
     Dosage: 20 MG, QD
     Route: 048

REACTIONS (5)
  - RENAL FAILURE ACUTE [None]
  - DISSEMINATED INTRAVASCULAR COAGULATION [None]
  - BLOOD CREATINE PHOSPHOKINASE INCREASED [None]
  - DIABETIC KETOACIDOSIS [None]
  - ACUTE RESPIRATORY FAILURE [None]
